FAERS Safety Report 6493709-X (Version None)
Quarter: 2009Q4

REPORT INFORMATION
  Report Type: 
  Country: None (occurrence: None)
  Receive Date: 20091214
  Receipt Date: 20090408
  Transmission Date: 20100525
  Serious: Yes (Death, Hospitalization)
  Sender: FDA-Public Use
  Company Number: CA-SANOFI-AVENTIS-D01200805244

PATIENT
  Age: 78 Year
  Sex: Female
  Weight: 82 kg

DRUGS (7)
  1. CLOPIDOGREL BISULFATE [Suspect]
     Indication: ATRIAL FIBRILLATION
     Dosage: UNIT DOSE: 75 MG
     Route: 048
     Dates: start: 20041027
  2. BLINDED THERAPY [Concomitant]
     Indication: ATRIAL FIBRILLATION
     Dosage: DOSE TEXT: 150 MG/DAY FOR 2 WEEKS FOLLOWING BY 300 MG/DAYUNIT DOSE: 150 MG
     Route: 048
     Dates: start: 20041027
  3. ASPIRIN [Concomitant]
     Indication: ATRIAL FIBRILLATION
     Route: 048
     Dates: start: 20041027
  4. NITRO-DUR [Concomitant]
  5. LANOXIN [Concomitant]
  6. DILTIAZEM [Concomitant]
  7. LASIX [Concomitant]

REACTIONS (3)
  - ANAEMIA [None]
  - COLON CANCER [None]
  - VOMITING [None]
